FAERS Safety Report 8160950-X (Version None)
Quarter: 2012Q1

REPORT INFORMATION
  Report Type: 
  Country: None (occurrence: None)
  Receive Date: 20120223
  Receipt Date: 20120216
  Transmission Date: 20120608
  Serious: Yes (Other)
  Sender: FDA-Public Use
  Company Number: US-ASTRAZENECA-2012SE00562

PATIENT
  Age: 58 Year
  Sex: Male

DRUGS (4)
  1. DILANTIN [Concomitant]
  2. CRESTOR [Suspect]
     Route: 048
  3. NORVASC [Concomitant]
  4. DILANTIN [Concomitant]
     Indication: CONVULSION

REACTIONS (1)
  - CONVULSION [None]
